FAERS Safety Report 9252491 (Version 1)
Quarter: 2013Q2

REPORT INFORMATION
  Report Type: Spontaneous
  Country: US (occurrence: US)
  Receive Date: 20130424
  Receipt Date: 20130424
  Transmission Date: 20140414
  Serious: Yes (Other)
  Sender: FDA-Public Use
  Company Number: US-PFIZER INC-2013127550

PATIENT
  Age: 53 Year
  Sex: Male
  Weight: 122.4 kg

DRUGS (2)
  1. LYRICA [Suspect]
     Indication: DIABETIC NEUROPATHY
     Dosage: 75 MG, 1X/DAY
     Route: 048
     Dates: end: 201304
  2. LIPITOR [Concomitant]

REACTIONS (5)
  - Drug ineffective [Unknown]
  - Fall [Unknown]
  - Pain [Unknown]
  - Musculoskeletal discomfort [Unknown]
  - Pain in extremity [Unknown]
